FAERS Safety Report 12964990 (Version 5)
Quarter: 2017Q4

REPORT INFORMATION
  Report Type: Report from Study
  Country: JP (occurrence: JP)
  Receive Date: 20161122
  Receipt Date: 20171101
  Transmission Date: 20180320
  Serious: Yes (Hospitalization, Other)
  Sender: FDA-Public Use
  Company Number: JP-INCYTE CORPORATION-2016IN007393

PATIENT

DRUGS (2)
  1. JAKAVI [Suspect]
     Active Substance: RUXOLITINIB
     Dosage: UNK
     Route: 048
     Dates: start: 20151120
  2. JAKAVI [Suspect]
     Active Substance: RUXOLITINIB
     Indication: MYELOFIBROSIS
     Dosage: 5 MG, QD
     Route: 048

REACTIONS (10)
  - Gait disturbance [Unknown]
  - Pyrexia [Unknown]
  - Decreased appetite [Unknown]
  - Bradycardia [Unknown]
  - Blood pressure systolic increased [Unknown]
  - Muscular weakness [Unknown]
  - Pain in extremity [Unknown]
  - Asthenia [Unknown]
  - Herpes zoster disseminated [Recovering/Resolving]
  - Meningitis viral [Unknown]
